FAERS Safety Report 12351161 (Version 1)
Quarter: 2016Q2

REPORT INFORMATION
  Report Type: Spontaneous
  Country: US (occurrence: US)
  Receive Date: 20160510
  Receipt Date: 20160510
  Transmission Date: 20160815
  Serious: Yes (Other)
  Sender: FDA-Public Use
  Company Number: US-JNJFOC-20160507315

PATIENT
  Age: 8 Decade
  Sex: Male

DRUGS (1)
  1. STELARA [Suspect]
     Active Substance: USTEKINUMAB
     Indication: PSORIATIC ARTHROPATHY
     Route: 058
     Dates: end: 2016

REACTIONS (1)
  - Lung neoplasm malignant [Unknown]

NARRATIVE: CASE EVENT DATE: 2016
